FAERS Safety Report 21589629 (Version 3)
Quarter: 2023Q1

REPORT INFORMATION
  Report Type: Spontaneous
  Country: US (occurrence: US)
  Receive Date: 20221114
  Receipt Date: 20230312
  Transmission Date: 20230418
  Serious: Yes (Other)
  Sender: FDA-Public Use
  Company Number: US-002147023-NVSC2022US255996

PATIENT
  Sex: Male
  Weight: 76.6 kg

DRUGS (2)
  1. PLUVICTO [Suspect]
     Active Substance: LUTETIUM LU-177 VIPIVOTIDE TETRAXETAN
     Indication: Hormone-refractory prostate cancer
     Dosage: 200 MCI (EVERY) (LIQUID)
     Route: 042
     Dates: start: 20220825, end: 20220825
  2. PLUVICTO [Suspect]
     Active Substance: LUTETIUM LU-177 VIPIVOTIDE TETRAXETAN
     Dosage: UNK
     Route: 065
     Dates: start: 20221006, end: 20221008

REACTIONS (3)
  - Hormone-refractory prostate cancer [Unknown]
  - Malignant neoplasm progression [Unknown]
  - Ill-defined disorder [Unknown]
